FAERS Safety Report 7539435-7 (Version None)
Quarter: 2011Q2

REPORT INFORMATION
  Report Type: 
  Country: None (occurrence: None)
  Receive Date: 20110610
  Receipt Date: 20110602
  Transmission Date: 20111010
  Serious: Yes (Other)
  Sender: FDA-Public Use
  Company Number: JP-PFIZER INC-2011124907

PATIENT
  Age: 72 Year
  Sex: Male

DRUGS (3)
  1. ISODINE [Suspect]
     Indication: CATARACT OPERATION
     Route: 047
  2. CHLORHEXIDINE [Concomitant]
  3. AMIODARONE HYDROCHLORIDE [Suspect]
     Indication: HYPERTROPHIC CARDIOMYOPATHY
     Dosage: 100 MG, 1X/DAY
     Route: 048

REACTIONS (3)
  - CORNEAL DISORDER [None]
  - EYE IRRITATION [None]
  - CORNEAL PIGMENTATION [None]
